FAERS Safety Report 10970403 (Version 4)
Quarter: 2015Q3

REPORT INFORMATION
  Report Type: Spontaneous
  Country: JP (occurrence: JP)
  Receive Date: 20150331
  Receipt Date: 20150902
  Transmission Date: 20151125
  Serious: Yes (Hospitalization, Other)
  Sender: FDA-Public Use
  Company Number: JP-ASTELLAS-2015JP006035AA

PATIENT
  Age: 54 Year
  Sex: Male

DRUGS (20)
  1. UROKINASE [Suspect]
     Active Substance: UROKINASE
     Indication: CIRCULATORY COLLAPSE
     Route: 041
     Dates: start: 20130131, end: 20130204
  2. SIMULECT [Concomitant]
     Active Substance: BASILIXIMAB
     Route: 042
     Dates: start: 20130204, end: 20130204
  3. CELLCEPT [Concomitant]
     Active Substance: MYCOPHENOLATE MOFETIL\MYCOPHENOLATE MOFETIL HYDROCHLORIDE
     Indication: CHRONIC KIDNEY DISEASE
     Route: 048
     Dates: start: 20130202
  4. ALLOID G [Concomitant]
     Active Substance: SODIUM ALGINATE
     Indication: GASTRIC ULCER
     Route: 048
     Dates: start: 20130201, end: 20130426
  5. PROGRAF [Suspect]
     Active Substance: TACROLIMUS\TACROLIMUS ANHYDROUS
     Route: 048
     Dates: start: 20130405
  6. SOLU-MEDROL [Concomitant]
     Active Substance: METHYLPREDNISOLONE SODIUM SUCCINATE
     Indication: CHRONIC KIDNEY DISEASE
     Dosage: DECREASE GRADUALLY FROM 500 MG, ONCE DAILY
     Route: 042
     Dates: start: 20130131, end: 20130206
  7. TAKEPRON [Concomitant]
     Active Substance: LANSOPRAZOLE
     Indication: GASTRIC ULCER
     Route: 042
     Dates: start: 20130131, end: 20130205
  8. CARBENIN [Concomitant]
     Active Substance: BETAMIPRON\PANIPENEM
     Indication: WOUND INFECTION
     Dosage: 0.5 G, ONCE DAILY
     Route: 042
     Dates: start: 20130203, end: 20130208
  9. PROGRAF [Suspect]
     Active Substance: TACROLIMUS\TACROLIMUS ANHYDROUS
     Indication: CHRONIC KIDNEY DISEASE
     Route: 048
     Dates: start: 20130205, end: 20130303
  10. INOVAN                             /00360702/ [Concomitant]
     Indication: CIRCULATORY COLLAPSE
     Dosage: 0.9 MG, CONTINUOUS
     Route: 041
     Dates: start: 20130131, end: 20130206
  11. PROGRAF [Suspect]
     Active Substance: TACROLIMUS\TACROLIMUS ANHYDROUS
     Route: 048
     Dates: start: 20130304, end: 20130404
  12. NEXIUM [Concomitant]
     Active Substance: ESOMEPRAZOLE MAGNESIUM
     Indication: GASTRIC ULCER
     Route: 048
     Dates: start: 20130206
  13. PROGRAF [Suspect]
     Active Substance: TACROLIMUS\TACROLIMUS ANHYDROUS
     Indication: CHRONIC KIDNEY DISEASE
     Route: 041
     Dates: start: 20130131, end: 20130204
  14. SIMULECT [Concomitant]
     Active Substance: BASILIXIMAB
     Indication: CHRONIC KIDNEY DISEASE
     Route: 042
     Dates: start: 20130131, end: 20130131
  15. CEFAMEZIN ? [Concomitant]
     Indication: WOUND INFECTION
     Route: 042
     Dates: start: 20130131, end: 20130202
  16. BISOLVON [Concomitant]
     Active Substance: BROMHEXINE HYDROCHLORIDE
     Indication: SPUTUM RETENTION
     Route: 042
     Dates: start: 20130131, end: 20130205
  17. MEDROL [Concomitant]
     Active Substance: METHYLPREDNISOLONE
     Indication: CHRONIC KIDNEY DISEASE
     Route: 048
     Dates: start: 20130207
  18. PROCYLIN [Concomitant]
     Active Substance: BERAPROST SODIUM
     Indication: CIRCULATORY COLLAPSE
     Route: 048
     Dates: start: 20130205
  19. PROGRAF [Suspect]
     Active Substance: TACROLIMUS\TACROLIMUS ANHYDROUS
     Dosage: UNK, UNKNOWN FREQ.
     Route: 048
     Dates: start: 20130322
  20. CONIEL [Concomitant]
     Active Substance: BENIDIPINE HYDROCHLORIDE
     Indication: HYPERTENSION
     Route: 048
     Dates: start: 20130202

REACTIONS (2)
  - Perirenal haematoma [Recovering/Resolving]
  - Cytomegalovirus infection [Recovered/Resolved]

NARRATIVE: CASE EVENT DATE: 20130204
